FAERS Safety Report 23896807 (Version 1)
Quarter: 2024Q2

REPORT INFORMATION
  Report Type: Spontaneous
  Country: PT (occurrence: PT)
  Receive Date: 20240524
  Receipt Date: 20240524
  Transmission Date: 20240716
  Serious: Yes (Other)
  Sender: FDA-Public Use
  Company Number: None

PATIENT
  Sex: Female

DRUGS (5)
  1. MOMETASONE FUROATE [Suspect]
     Active Substance: MOMETASONE FUROATE
     Indication: Rhinitis allergic
     Dosage: 1 SPRAY IN EACH NOSTRIL 1 TIME /DAY
     Route: 045
  2. FLUTICASONE FUROATE [Suspect]
     Active Substance: FLUTICASONE FUROATE
     Indication: Rhinitis allergic
     Dosage: 1 SPRAY IN EACH NOSTRIL 1 TIME /DAY
     Route: 045
  3. RINIALER [RUPATADINE FUMARATE] [Concomitant]
     Dosage: UNK
  4. BILASTINE [Concomitant]
     Active Substance: BILASTINE
     Dosage: UNK
  5. DESOGESTREL [Concomitant]
     Active Substance: DESOGESTREL
     Dosage: UNK

REACTIONS (1)
  - Sneezing [Recovered/Resolved]
